FAERS Safety Report 6723309-5 (Version None)
Quarter: 2010Q2

REPORT INFORMATION
  Report Type: 
  Country: None (occurrence: None)
  Receive Date: 20100513
  Receipt Date: 20100513
  Transmission Date: 20101027
  Serious: No
  Sender: FDA-Public Use
  Company Number: None

PATIENT
  Age: 8 Month
  Sex: Female
  Weight: 10.8863 kg

DRUGS (1)
  1. TYLENOL INFANTS DROPS  CONCENTRATED 80MG/ 0.8ML  MCNEIL [Suspect]
     Indication: TEETHING
     Dosage: 0.4ML EVERY 6 HOURS PO
     Route: 048
     Dates: start: 20100511, end: 20100512

REACTIONS (2)
  - HYPERPYREXIA [None]
  - INFLUENZA LIKE ILLNESS [None]
